FAERS Safety Report 25875658 (Version 2)
Quarter: 2025Q4

REPORT INFORMATION
  Report Type: Report from Study
  Country: US (occurrence: US)
  Receive Date: 20251003
  Receipt Date: 20251103
  Transmission Date: 20260119
  Serious: Yes (Hospitalization)
  Sender: EMD SERONO INC
  Company Number: US-Merck Healthcare KGaA-2025048619

PATIENT
  Age: 52 Year
  Sex: Female

DRUGS (4)
  1. SEROSTIM [Suspect]
     Active Substance: SOMATROPIN
     Indication: Colitis ulcerative
     Dosage: 6 MG, IN A MONTH L USES 7 SINGLE DOSE VIALS
  2. ORENCIA [Concomitant]
     Active Substance: ABATACEPT
     Indication: Colitis ulcerative
  3. HUMIRA [Concomitant]
     Active Substance: ADALIMUMAB
     Indication: Colitis ulcerative
  4. REMICADE [Concomitant]
     Active Substance: INFLIXIMAB
     Indication: Colitis ulcerative

REACTIONS (5)
  - Pain [Unknown]
  - Decreased appetite [Unknown]
  - Product use in unapproved indication [Unknown]
  - Prescription drug used without a prescription [Unknown]
  - Therapeutic product effective for unapproved indication [Unknown]
